FAERS Safety Report 19364287 (Version 2)
Quarter: 2021Q2

REPORT INFORMATION
  Report Type: Spontaneous
  Country: US (occurrence: US)
  Receive Date: 20210603
  Receipt Date: 20210616
  Transmission Date: 20210717
  Serious: Yes (Hospitalization)
  Sender: FDA-Public Use
  Company Number: US-TEVA-2021-US-1917621

PATIENT
  Sex: Female

DRUGS (31)
  1. IRINOTECAN [Suspect]
     Active Substance: IRINOTECAN
     Indication: NEUROBLASTOMA
     Dosage: 50 MG/M2 DAILY; 90 MIN FROM DAYS 1?5 = CYCLE 1
     Route: 042
     Dates: start: 20190416, end: 20190420
  2. OXYCODONE/ACETAMINOPHEN [Suspect]
     Active Substance: ACETAMINOPHEN\OXYCODONE HYDROCHLORIDE
     Indication: NEURALGIA
  3. METHADONE [Suspect]
     Active Substance: METHADONE HYDROCHLORIDE
     Indication: PAIN
     Dosage: 7.5 MILLIGRAM DAILY; INTERVAL: THRICE DAILY
     Route: 048
  4. IRINOTECAN [Suspect]
     Active Substance: IRINOTECAN
     Dosage: 50 MG/M2 DAILY; CYCLE 2
     Route: 042
     Dates: start: 20190506, end: 20190510
  5. IRINOTECAN [Suspect]
     Active Substance: IRINOTECAN
     Dosage: 50 MG/M2 DAILY;
     Route: 042
     Dates: start: 20190722, end: 20190726
  6. TEMOZOLOMIDE. [Suspect]
     Active Substance: TEMOZOLOMIDE
     Indication: NEUROBLASTOMA
     Dosage: 100 MG/M2 DAILY; CYCLE 1
     Route: 048
     Dates: start: 20190416, end: 20190420
  7. DIPHENHYDRAMINE. [Suspect]
     Active Substance: DIPHENHYDRAMINE
     Indication: PRURITUS
     Route: 065
  8. DIPHENHYDRAMINE. [Suspect]
     Active Substance: DIPHENHYDRAMINE
     Indication: PAIN
  9. ACETAMINOPHEN. [Concomitant]
     Active Substance: ACETAMINOPHEN
     Indication: PYREXIA
     Route: 065
  10. TOPOTECAN [Suspect]
     Active Substance: TOPOTECAN HYDROCHLORIDE
     Indication: NEUROBLASTOMA
     Dosage: RECEIVED 2 CYCLE
     Route: 065
  11. GABAPENTIN. [Suspect]
     Active Substance: GABAPENTIN
     Indication: NEURALGIA
  12. CISPLATIN. [Suspect]
     Active Substance: CISPLATIN
     Indication: NEUROBLASTOMA
     Dosage: RECEIVED 1 CYCLE
     Route: 065
  13. TEMOZOLOMIDE. [Suspect]
     Active Substance: TEMOZOLOMIDE
     Dosage: 100 MG/M2 DAILY;
     Route: 048
     Dates: start: 20190722, end: 20190726
  14. ATROPINE. [Suspect]
     Active Substance: ATROPINE
     Indication: DIARRHOEA
     Route: 065
  15. IRINOTECAN [Suspect]
     Active Substance: IRINOTECAN
     Dosage: 50 MG/M2 DAILY; CYCLE 3
     Route: 042
     Dates: start: 20190604, end: 20190608
  16. OXYCODONE/ACETAMINOPHEN [Suspect]
     Active Substance: ACETAMINOPHEN\OXYCODONE HYDROCHLORIDE
     Indication: PAIN
     Route: 048
  17. DINUTUXIMAB [Suspect]
     Active Substance: DINUTUXIMAB
     Dosage: 17.5 MG/M2 DAILY; CYCLE 3
     Route: 041
     Dates: start: 20190605, end: 20190608
  18. ETOPOSIDE. [Suspect]
     Active Substance: ETOPOSIDE
     Indication: NEUROBLASTOMA
     Dosage: RECEIVED 1 CYCLE
     Route: 065
  19. CYCLOPHOSPHAMIDE. [Suspect]
     Active Substance: CYCLOPHOSPHAMIDE
     Indication: NEUROBLASTOMA
     Dosage: RECEIVED 2 CYCLES
     Route: 065
  20. TEMOZOLOMIDE. [Suspect]
     Active Substance: TEMOZOLOMIDE
     Dosage: 100 MG/M2 DAILY; CYCLE 3
     Route: 048
     Dates: start: 20190604, end: 20190608
  21. DINUTUXIMAB [Suspect]
     Active Substance: DINUTUXIMAB
     Indication: NEUROBLASTOMA
     Dosage: 17.5 MG/M2 DAILY; CYCLE 2
     Route: 041
     Dates: start: 20190507, end: 20190510
  22. HYDROMORPHONE [Suspect]
     Active Substance: HYDROMORPHONE
     Indication: NEURALGIA
  23. HYDROMORPHONE [Suspect]
     Active Substance: HYDROMORPHONE
     Indication: PAIN
     Route: 042
  24. METHADONE [Suspect]
     Active Substance: METHADONE HYDROCHLORIDE
     Indication: NEURALGIA
  25. ONDANSETRON [Concomitant]
     Active Substance: ONDANSETRON
     Indication: NAUSEA
     Route: 065
  26. GABAPENTIN. [Suspect]
     Active Substance: GABAPENTIN
     Indication: PAIN
     Route: 065
  27. MORPHINE EQUIVALENTS [Suspect]
     Active Substance: MORPHINE
     Indication: PAIN
     Dosage: RECEIVED TOTAL DOSE OF 1349 MG FOR 8 DAYS
     Route: 048
  28. MORPHINE EQUIVALENTS [Suspect]
     Active Substance: MORPHINE
     Indication: NEURALGIA
     Dosage: RECEIVED TOTAL DOSE OF 1000MG FOR 7 DAYS DURING CYCLE 3
     Route: 048
  29. TEMOZOLOMIDE. [Suspect]
     Active Substance: TEMOZOLOMIDE
     Dosage: 100 MG/M2 DAILY; CYCLE 2
     Route: 048
     Dates: start: 20190506, end: 20190510
  30. DIPHENHYDRAMINE. [Suspect]
     Active Substance: DIPHENHYDRAMINE
     Indication: NEURALGIA
  31. METOCLOPRAMIDE. [Concomitant]
     Active Substance: METOCLOPRAMIDE
     Indication: NAUSEA
     Route: 065

REACTIONS (15)
  - Respiratory depression [Unknown]
  - Drug ineffective [Unknown]
  - Haemodynamic instability [Unknown]
  - Sinus tachycardia [Unknown]
  - Electrocardiogram ST segment depression [Unknown]
  - Neuropathy peripheral [Unknown]
  - Mental status changes [Unknown]
  - Diarrhoea [Recovered/Resolved]
  - Constipation [Unknown]
  - Confusional state [Unknown]
  - Off label use [Unknown]
  - Infusion related reaction [Unknown]
  - Neuralgia [Recovered/Resolved]
  - Sedation [Unknown]
  - Pain [Recovered/Resolved]
